FAERS Safety Report 25070746 (Version 1)
Quarter: 2025Q1

REPORT INFORMATION
  Report Type: Spontaneous
  Country: US (occurrence: US)
  Receive Date: 20250312
  Receipt Date: 20250312
  Transmission Date: 20250409
  Serious: No
  Sender: SANOFI AVENTIS
  Company Number: US-SA-2025SA071426

PATIENT
  Sex: Female
  Weight: 16 kg

DRUGS (1)
  1. DUPIXENT [Suspect]
     Active Substance: DUPILUMAB
     Indication: Dermatitis allergic
     Dosage: 200MG
     Route: 058
     Dates: start: 202406

REACTIONS (3)
  - Eczema [Unknown]
  - Pruritus [Unknown]
  - Erythema [Unknown]
